FAERS Safety Report 25767515 (Version 1)
Quarter: 2025Q3

REPORT INFORMATION
  Report Type: Spontaneous
  Country: US (occurrence: None)
  Receive Date: 20250904
  Receipt Date: 20250904
  Transmission Date: 20251021
  Serious: Yes (Other)
  Sender: FDA-CTU
  Company Number: None

PATIENT
  Age: 27 Year
  Sex: Female
  Weight: 74.25 kg

DRUGS (4)
  1. RETATRUTIDE SODIUM [Suspect]
     Active Substance: RETATRUTIDE SODIUM
     Indication: Supplementation therapy
  2. VITAMIN C [Concomitant]
     Active Substance: ASCORBIC ACID
  3. D [Concomitant]
  4. B12 [Concomitant]

REACTIONS (4)
  - Intentional product misuse [None]
  - Product advertising issue [None]
  - Organ failure [None]
  - Disease complication [None]

NARRATIVE: CASE EVENT DATE: 20250827
